FAERS Safety Report 8671566 (Version 3)
Quarter: 2012Q4

REPORT INFORMATION
  Report Type: 
  Country: US (occurrence: US)
  Receive Date: 20120718
  Receipt Date: 20121114
  Transmission Date: 20130627
  Serious: Yes (Other)
  Sender: FDA-Public Use
  Company Number: US-RB-042260-12

PATIENT
  Age: 30 Year
  Sex: Female

DRUGS (8)
  1. SUBOXONE TABLET [Suspect]
     Indication: DRUG DEPENDENCE
     Dosage: 1 1/2 tablets
     Route: 060
     Dates: start: 2010, end: 2010
  2. SUBOXONE TABLET [Suspect]
     Dosage: 1 1/2 tablets
     Route: 060
     Dates: start: 2010, end: 2010
  3. SUBOXONE TABLET [Suspect]
     Dosage: 1 1/2 tablets
     Route: 060
     Dates: start: 201206, end: 201206
  4. SUBOXONE FILM [Suspect]
     Indication: DRUG DEPENDENCE
     Dosage: Suboxone film; 1 1/2 films
     Route: 060
     Dates: start: 2010, end: 2010
  5. SUBUTEX [Suspect]
     Indication: PRODUCT USED FOR UNKNOWN INDICATION
     Dosage: 1 1/2 tablets daily
     Route: 065
     Dates: start: 2010
  6. ENJUVIA [Concomitant]
     Indication: HORMONE REPLACEMENT THERAPY
     Route: 065
  7. NEURONTIN [Concomitant]
     Indication: NERVE INJURY
     Route: 065
  8. CIGARETTES [Concomitant]
     Indication: NICOTINE DEPENDENCE
     Dosage: 10 cigarettes a day
     Route: 065

REACTIONS (6)
  - Visual impairment [Recovered/Resolved]
  - Tinnitus [Recovered/Resolved]
  - Headache [Recovered/Resolved]
  - Substance abuse [Recovered/Resolved]
  - Wrong technique in drug usage process [Recovered/Resolved]
  - Convulsion [Not Recovered/Not Resolved]
